FAERS Safety Report 17760332 (Version 1)
Quarter: 2020Q2

REPORT INFORMATION
  Report Type: Spontaneous
  Country: JP (occurrence: JP)
  Receive Date: 20200508
  Receipt Date: 20200508
  Transmission Date: 20200714
  Serious: Yes (Hospitalization)
  Sender: FDA-Public Use
  Company Number: JP-CELGENEUS-JPN-20190400268

PATIENT
  Age: 82 Year
  Sex: Female
  Weight: 59.5 kg

DRUGS (28)
  1. AZACITIDINE. [Suspect]
     Active Substance: AZACITIDINE
     Dosage: 75 MILLIGRAM/SQ. METER
     Route: 058
     Dates: start: 20190418
  2. SENNOSIDE A+B [Concomitant]
     Active Substance: SENNOSIDES A AND B
     Indication: CONSTIPATION
     Dosage: 24 MILLIGRAM
     Route: 048
     Dates: start: 20180506
  3. KETOPROFEN. [Concomitant]
     Active Substance: KETOPROFEN
     Indication: PAIN
     Dosage: 40 MILLIGRAM
     Route: 061
     Dates: start: 20180712
  4. NEW LECICARBON [Concomitant]
     Active Substance: SODIUM BICARBONATE\SODIUM PHOSPHATE, MONOBASIC
     Indication: CONSTIPATION
     Dosage: 2.6 GRAM
     Route: 054
     Dates: start: 20180512
  5. CAPSAICIN DL-CAMPHOR METHYL SALICYLATE [Concomitant]
     Indication: ARTHRITIS
     Dosage: 20 GRAM
     Route: 061
     Dates: start: 20181205
  6. VENETOCLAX (VERUM) [Concomitant]
     Dosage: 200 MILLIGRAM
     Route: 048
     Dates: start: 20180504, end: 20180504
  7. KETOPROFEN. [Concomitant]
     Active Substance: KETOPROFEN
     Indication: BACK PAIN
     Dosage: 40 MILLIGRAM
     Route: 061
     Dates: start: 20181007
  8. VENETOCLAX (VERUM) [Concomitant]
     Dosage: 400 MILLIGRAM
     Route: 048
     Dates: start: 20180505, end: 20181231
  9. AZACITIDINE. [Suspect]
     Active Substance: AZACITIDINE
     Indication: ACUTE MYELOID LEUKAEMIA
     Dosage: 75 MILLIGRAM/SQ. METER
     Route: 058
     Dates: start: 20180503, end: 20181217
  10. LUBIPROSTONE [Concomitant]
     Active Substance: LUBIPROSTONE
     Indication: CONSTIPATION
     Dosage: 24 MICROGRAM
     Route: 048
     Dates: start: 20180710
  11. SODIUM GUALENATE HYDRATE [Concomitant]
     Active Substance: SODIUM GUALENATE MONOHYDRATE
     Indication: INFECTION PROPHYLAXIS
     Dosage: 4 PERCENT
     Route: 061
     Dates: start: 20181012
  12. CLOSTRIDIUM BUTYRICUM [Concomitant]
     Active Substance: CLOSTRIDIUM BUTYRICUM SPORES STRAIN M-55
     Indication: PROPHYLAXIS AGAINST DIARRHOEA
     Dosage: 3 GRAM
     Route: 048
     Dates: start: 20190104
  13. DEXAMETHASONE. [Concomitant]
     Active Substance: DEXAMETHASONE
     Indication: STOMATITIS
     Dosage: .001 PERCENT
     Route: 061
     Dates: start: 20190107
  14. VENETOCLAX (VERUM) [Concomitant]
     Indication: ACUTE MYELOID LEUKAEMIA
     Dosage: 100 MILLIGRAM
     Route: 048
     Dates: start: 20180503, end: 20180503
  15. FEBUXOSTAT. [Concomitant]
     Active Substance: FEBUXOSTAT
     Indication: PROPHYLAXIS
     Dosage: 60 MILLIGRAM
     Route: 048
     Dates: start: 20180502, end: 20180510
  16. SOLITA-T1 [Concomitant]
     Indication: PROPHYLAXIS
     Dosage: 8000 MILLILITER
     Route: 041
     Dates: start: 20180502, end: 20180509
  17. SENNOSIDE A+B [Concomitant]
     Active Substance: SENNOSIDES A AND B
     Dosage: 24 MILLIGRAM
     Route: 048
     Dates: start: 20181103
  18. HYALURONATE SODIUM [Concomitant]
     Active Substance: HYALURONATE SODIUM
     Indication: DRY EYE
     Dosage: .3 PERCENT
     Route: 061
     Dates: start: 20181006
  19. ZOLPIDEM [Concomitant]
     Active Substance: ZOLPIDEM TARTRATE
     Indication: INSOMNIA
     Dosage: 5 MILLIGRAM
     Route: 048
     Dates: start: 20180522
  20. CLOBETASOL PROPIONATE. [Concomitant]
     Active Substance: CLOBETASOL PROPIONATE
     Indication: ECZEMA ASTEATOTIC
     Dosage: .1 PERCENT
     Route: 061
     Dates: start: 20181004
  21. MUCOPOLYSACCHARIDE POLYSULFURIC ACID ESTER [Concomitant]
     Indication: ECZEMA ASTEATOTIC
     Dosage: .6 PERCENT
     Route: 061
     Dates: start: 20181004
  22. MAGNESIUM OXIDE. [Concomitant]
     Active Substance: MAGNESIUM OXIDE
     Indication: CONSTIPATION
     Dosage: 330 MILLIGRAM
     Route: 048
     Dates: start: 20180509
  23. GLICLAZIDE [Concomitant]
     Active Substance: GLICLAZIDE
     Indication: PAIN
     Dosage: .2 PERCENT
     Route: 061
     Dates: start: 20180607
  24. TARAXACUM OFFICINALE EXTRACT [Concomitant]
     Indication: ECZEMA ASTEATOTIC
     Dosage: 20 MILLIGRAM
     Route: 048
     Dates: start: 20180918
  25. MUCOPOLYSACCHARIDE POLYSULFURIC ACID ESTER [Concomitant]
     Dosage: .6 PERCENT
     Route: 061
     Dates: start: 20181016
  26. LEVOFLOXACIN. [Concomitant]
     Active Substance: LEVOFLOXACIN
     Indication: INFECTION PROPHYLAXIS
     Dosage: 500 MILLIGRAM
     Route: 048
     Dates: start: 20181225, end: 20190117
  27. AUGMENTIN [Concomitant]
     Active Substance: AMOXICILLIN\CLAVULANATE POTASSIUM
     Indication: INFECTION PROPHYLAXIS
     Dosage: 672 MILLIGRAM
     Route: 048
     Dates: start: 20190104, end: 20190117
  28. VENETOCLAX (VERUM) [Concomitant]
     Dosage: 400 MILLIGRAM
     Route: 048
     Dates: start: 20190418

REACTIONS (1)
  - Pulmonary mycosis [Recovered/Resolved]

NARRATIVE: CASE EVENT DATE: 20190117
